FAERS Safety Report 13412966 (Version 2)
Quarter: 2017Q4

REPORT INFORMATION
  Report Type: Spontaneous
  Country: US (occurrence: US)
  Receive Date: 20170406
  Receipt Date: 20171123
  Transmission Date: 20180320
  Serious: No
  Sender: FDA-Public Use
  Company Number: US-JNJFOC-20170312841

PATIENT
  Sex: Male

DRUGS (9)
  1. INVEGA [Suspect]
     Active Substance: PALIPERIDONE
     Indication: HALLUCINATION, VISUAL
     Dosage: 3 MG AND 6 MG
     Route: 048
     Dates: start: 20071213, end: 20100526
  2. INVEGA [Suspect]
     Active Substance: PALIPERIDONE
     Indication: PARANOIA
     Dosage: 3 MG AND 6 MG
     Route: 048
     Dates: start: 20071213, end: 20100526
  3. RISPERDAL [Suspect]
     Active Substance: RISPERIDONE
     Indication: HALLUCINATION, VISUAL
     Route: 048
     Dates: start: 20071210, end: 20100525
  4. RISPERDAL [Suspect]
     Active Substance: RISPERIDONE
     Indication: HALLUCINATION, VISUAL
     Dosage: RISPERIDONE 1 MG AND 2MG
     Route: 048
     Dates: start: 20060331, end: 20061102
  5. RISPERDAL [Suspect]
     Active Substance: RISPERIDONE
     Indication: PARANOIA
     Dosage: RISPERIDONE 1 MG AND 2MG
     Route: 048
     Dates: start: 20060331, end: 20061102
  6. SPIRONOLACTONE. [Suspect]
     Active Substance: SPIRONOLACTONE
     Indication: FLUID RETENTION
     Route: 065
  7. INVEGA [Suspect]
     Active Substance: PALIPERIDONE
     Indication: SCHIZOPHRENIA
     Dosage: 3 MG AND 6 MG
     Route: 048
     Dates: start: 20071213, end: 20100526
  8. RISPERDAL [Suspect]
     Active Substance: RISPERIDONE
     Indication: PARANOIA
     Route: 048
     Dates: start: 20071210, end: 20100525
  9. SPIRONOLACTONE. [Suspect]
     Active Substance: SPIRONOLACTONE
     Indication: HYPERTENSION
     Route: 065

REACTIONS (2)
  - Emotional disorder [Unknown]
  - Gynaecomastia [Unknown]
